FAERS Safety Report 4455644-8 (Version None)
Quarter: 2004Q3

REPORT INFORMATION
  Report Type: 
  Country: None (occurrence: None)
  Receive Date: 20040920
  Receipt Date: 20040913
  Transmission Date: 20050211
  Serious: Yes (Death, Other)
  Sender: FDA-Public Use
  Company Number: US-JNJFOC-20040903469

PATIENT
  Age: 39 Year
  Sex: Female

DRUGS (1)
  1. EXTRA STRENGTH TYLENOL [Suspect]
     Indication: INTENTIONAL MISUSE
     Dosage: 8,000-12,000 MG QD, FOR 1-2 MONTHS

REACTIONS (12)
  - ALANINE AMINOTRANSFERASE INCREASED [None]
  - ALCOHOLISM [None]
  - ASPARTATE AMINOTRANSFERASE INCREASED [None]
  - BLOOD CREATINE INCREASED [None]
  - BLOOD GLUCOSE DECREASED [None]
  - DRUG ABUSER [None]
  - DYSPNOEA [None]
  - ENCEPHALOPATHY [None]
  - GASTROINTESTINAL HAEMORRHAGE [None]
  - INTERNATIONAL NORMALISED RATIO INCREASED [None]
  - PCO2 DECREASED [None]
  - PH BODY FLUID DECREASED [None]
